FAERS Safety Report 5355073-9 (Version None)
Quarter: 2007Q2

REPORT INFORMATION
  Report Type: 
  Country: None (occurrence: None)
  Receive Date: 20070613
  Receipt Date: 20070531
  Transmission Date: 20071010
  Serious: Yes (Hospitalization)
  Sender: FDA-Public Use
  Company Number: PHBS2007BR09167

PATIENT
  Age: 9 Year
  Sex: Male
  Weight: 32 kg

DRUGS (5)
  1. RITALIN [Suspect]
     Indication: PSYCHOMOTOR HYPERACTIVITY
     Dosage: 0.5 TABLET/DAY
     Route: 048
  2. RITALIN [Suspect]
     Dosage: 10 MG, QD
     Route: 048
  3. RITALIN [Suspect]
     Dosage: 1.5 TABLET/DAY
     Route: 048
  4. RITALIN [Suspect]
     Dosage: 40 MG/DAY
     Route: 048
  5. CLUSIVOL [Concomitant]
     Dosage: 10 ML/DAY
     Route: 048

REACTIONS (4)
  - AGGRESSION [None]
  - ANOREXIA [None]
  - ENURESIS [None]
  - GASTROINTESTINAL INFECTION [None]
